FAERS Safety Report 5503489-X (Version None)
Quarter: 2007Q4

REPORT INFORMATION
  Report Type: 
  Country: None (occurrence: None)
  Receive Date: 20071029
  Receipt Date: 20071017
  Transmission Date: 20080405
  Serious: Yes (Other)
  Sender: FDA-Public Use
  Company Number: CHPA2007CA10943

PATIENT
  Age: 2 Year
  Sex: Male

DRUGS (1)
  1. JACK + JILL COUGH + COLD (NCH)(CHLORPHENIRAMINE MALEATE, DEXTROMETHORP [Suspect]
     Dosage: 20ML, ONCE/SINGLE, ORAL
     Route: 048
     Dates: start: 20071017

REACTIONS (1)
  - SOMNOLENCE [None]
